FAERS Safety Report 8531600-5 (Version None)
Quarter: 2012Q3

REPORT INFORMATION
  Report Type: 
  Country: None (occurrence: None)
  Receive Date: 20120723
  Receipt Date: 20120717
  Transmission Date: 20120928
  Serious: Yes (Other)
  Sender: FDA-Public Use
  Company Number: BR-ROCHE-1050236

PATIENT
  Sex: Female
  Weight: 67 kg

DRUGS (6)
  1. METICORTEN [Concomitant]
  2. ATORVASTATIN [Concomitant]
  3. DICLOFENAC SODIUM [Concomitant]
  4. PRESS PLUS [Concomitant]
  5. MABTHERA [Suspect]
     Indication: PRODUCT USED FOR UNKNOWN INDICATION
     Route: 042
     Dates: start: 20091201, end: 20110810
  6. ARAVA [Concomitant]

REACTIONS (4)
  - INFLUENZA [None]
  - ARTHRALGIA [None]
  - PRODUCTIVE COUGH [None]
  - INTERVERTEBRAL DISC PROTRUSION [None]
